FAERS Safety Report 4760200-8 (Version None)
Quarter: 2005Q3

REPORT INFORMATION
  Report Type: 
  Country: None (occurrence: None)
  Receive Date: 20050902
  Receipt Date: 20050824
  Transmission Date: 20060218
  Serious: Yes (Hospitalization)
  Sender: FDA-Public Use
  Company Number: US-JNJFOC-20050602859

PATIENT
  Sex: Female

DRUGS (4)
  1. RISPERDAL CONSTA [Suspect]
     Indication: DEMENTIA
     Route: 030
     Dates: start: 20050223, end: 20050521
  2. RISPERDAL [Suspect]
     Indication: DRUG USE FOR UNKNOWN INDICATION
  3. DEPAKOTE [Concomitant]
     Dosage: (AT BEDTIME)
  4. DEPAKOTE [Concomitant]
     Dosage: (IN MORNING)

REACTIONS (11)
  - ABASIA [None]
  - BONE PAIN [None]
  - DROOLING [None]
  - DYSPHAGIA [None]
  - EYE MOVEMENT DISORDER [None]
  - FEEDING DISORDER [None]
  - LACRIMATION INCREASED [None]
  - MUSCULOSKELETAL STIFFNESS [None]
  - PHARYNGEAL OEDEMA [None]
  - THROAT TIGHTNESS [None]
  - URINARY TRACT INFECTION [None]
